FAERS Safety Report 6793822-3 (Version None)
Quarter: 2010Q2

REPORT INFORMATION
  Report Type: 
  Country: None (occurrence: None)
  Receive Date: 20100624
  Receipt Date: 20090401
  Transmission Date: 20101027
  Serious: No
  Sender: FDA-Public Use
  Company Number: US-PFIZER INC-2009165759

PATIENT
  Sex: Female
  Weight: 61.2 kg

DRUGS (3)
  1. DEPO-PROVERA [Suspect]
     Indication: CONTRACEPTION
     Dates: start: 20081013, end: 20090119
  2. VITAMIN B6 [Concomitant]
  3. ISONIAZID [Concomitant]

REACTIONS (1)
  - MENORRHAGIA [None]
